FAERS Safety Report 7359619-0 (Version None)
Quarter: 2011Q1

REPORT INFORMATION
  Report Type: 
  Country: None (occurrence: None)
  Receive Date: 20110317
  Receipt Date: 20100127
  Transmission Date: 20110831
  Serious: No
  Sender: FDA-Public Use
  Company Number: US-PFIZER INC-2010012610

PATIENT
  Age: 67 Year
  Sex: Male
  Weight: 84 kg

DRUGS (9)
  1. NORVASC [Suspect]
     Indication: HYPERTENSION
     Dosage: 10 MG, 2X/DAY
     Route: 048
  2. CEFOTAXIME [Suspect]
     Indication: CHRONIC SINUSITIS
     Dosage: 1.5 G, UNK
     Dates: start: 20100112, end: 20100121
  3. POTASSIUM [Concomitant]
     Indication: BLOOD POTASSIUM DECREASED
     Dosage: 20 MEQ, UNK
     Dates: start: 20090101
  4. COARTEM [Concomitant]
     Indication: HYPERSENSITIVITY
     Dosage: 10 MG DAILY
     Route: 048
  5. ACETYLSALICYLIC ACID [Concomitant]
     Dosage: 81 MG DAILY
  6. CLINDAMYCIN PHOSPHATE [Suspect]
     Indication: CHRONIC SINUSITIS
     Dosage: 900 MG, UNK
     Dates: start: 20100112, end: 20100121
  7. COZAAR [Concomitant]
     Indication: HYPERTENSION
     Dosage: 100 MG DAILY
     Route: 048
  8. AZITHROMYCIN [Suspect]
     Indication: CHRONIC SINUSITIS
     Dosage: 500 MG, 2X/DAY
     Dates: start: 20091208, end: 20091222
  9. LASIX [Concomitant]
     Indication: OEDEMA
     Dosage: 20 MG DAILY
     Route: 048
     Dates: start: 20090101

REACTIONS (1)
  - HEPATIC ENZYME INCREASED [None]
